FAERS Safety Report 21351757 (Version 2)
Quarter: 2022Q4

REPORT INFORMATION
  Report Type: Spontaneous
  Country: FR (occurrence: FR)
  Receive Date: 20220919
  Receipt Date: 20221115
  Transmission Date: 20230113
  Serious: Yes (Death, Other)
  Sender: FDA-Public Use
  Company Number: FR-BRISTOL-MYERS SQUIBB COMPANY-2022-108170

PATIENT
  Age: 77 Year
  Sex: Female
  Weight: 70 kg

DRUGS (4)
  1. OPDIVO [Suspect]
     Active Substance: NIVOLUMAB
     Indication: Mesothelioma
     Dosage: DOSE: UNAVAILABLE; FREQ: UNAVAILABLE
     Route: 042
     Dates: start: 20211202, end: 20220715
  2. YERVOY [Suspect]
     Active Substance: IPILIMUMAB
     Indication: Mesothelioma
     Dosage: DOSE: UNAVAILABLE; FREQ: UNAVAILABLE
     Route: 042
     Dates: start: 20211202, end: 20220715
  3. Irbersatan [Concomitant]
     Indication: Hypertension
     Dosage: 300 BEFORE 2021 FREQUENCY: 1
     Route: 048
     Dates: end: 20220731
  4. ACEBUTOLOL [Concomitant]
     Active Substance: ACEBUTOLOL
     Indication: Palpitations
     Dosage: 200 FREQUENCY:2
     Route: 048
     Dates: start: 20220601, end: 20220731

REACTIONS (2)
  - Pulmonary embolism [Fatal]
  - Therapy non-responder [Unknown]

NARRATIVE: CASE EVENT DATE: 20220730
